FAERS Safety Report 19476512 (Version 1)
Quarter: 2021Q2

REPORT INFORMATION
  Report Type: Spontaneous
  Country: US (occurrence: US)
  Receive Date: 20210630
  Receipt Date: 20210630
  Transmission Date: 20210717
  Serious: Yes (Death, Hospitalization, Other)
  Sender: FDA-Public Use
  Company Number: US-ROCHE-2856979

PATIENT
  Age: 70 Year
  Sex: Female

DRUGS (1)
  1. XELODA [Suspect]
     Active Substance: CAPECITABINE
     Indication: PRODUCT USED FOR UNKNOWN INDICATION
     Route: 048

REACTIONS (27)
  - Diarrhoea [Unknown]
  - Hypertension [Unknown]
  - Ill-defined disorder [Unknown]
  - Toxicity to various agents [Fatal]
  - Fall [Unknown]
  - Fatigue [Unknown]
  - Decreased appetite [Unknown]
  - Depressed level of consciousness [Unknown]
  - Gait inability [Unknown]
  - Pharyngeal ulceration [Unknown]
  - Febrile neutropenia [Unknown]
  - Weight decreased [Unknown]
  - Mucosal inflammation [Unknown]
  - Speech disorder [Unknown]
  - Dry eye [Unknown]
  - Skin discolouration [Unknown]
  - Anal incontinence [Unknown]
  - Renal failure [Unknown]
  - Oesophageal ulcer haemorrhage [Unknown]
  - Cough [Unknown]
  - Delirium [Unknown]
  - Alopecia [Unknown]
  - Bone marrow failure [Unknown]
  - Skin exfoliation [Unknown]
  - Mouth ulceration [Unknown]
  - Palmar-plantar erythrodysaesthesia syndrome [Unknown]
  - Lip ulceration [Unknown]
